FAERS Safety Report 11411486 (Version 2)
Quarter: 2015Q4

REPORT INFORMATION
  Report Type: Spontaneous
  Country: US (occurrence: US)
  Receive Date: 20150824
  Receipt Date: 20151028
  Transmission Date: 20160304
  Serious: No
  Sender: FDA-Public Use
  Company Number: US-ACTELION PHARMACEUTICALS US, INC.-A-US2015-116335

PATIENT
  Age: 60 Year
  Sex: Female

DRUGS (2)
  1. WARFARIN [Concomitant]
     Active Substance: WARFARIN
  2. VELETRI [Suspect]
     Active Substance: EPOPROSTENOL
     Indication: PULMONARY ARTERIAL HYPERTENSION
     Dosage: 20 NG/KG, PER MIN
     Route: 042
     Dates: start: 20101020

REACTIONS (8)
  - Flushing [Unknown]
  - Transfusion [Unknown]
  - Cataract operation [Unknown]
  - Hypersensitivity [Unknown]
  - Exostosis [Unknown]
  - Catheter placement [Unknown]
  - Diarrhoea [Unknown]
  - Cataract [Unknown]

NARRATIVE: CASE EVENT DATE: 201501
